FAERS Safety Report 10156930 (Version 1)
Quarter: 2014Q2

REPORT INFORMATION
  Report Type: Spontaneous
  Country: JP (occurrence: JP)
  Receive Date: 20140507
  Receipt Date: 20140507
  Transmission Date: 20141212
  Serious: Yes (Other)
  Sender: FDA-Public Use
  Company Number: JP-JNJFOC-20140415296

PATIENT
  Age: 64 Year
  Sex: Male

DRUGS (4)
  1. TRAMCET [Suspect]
     Indication: BACK PAIN
     Dosage: 3 DOSES ONCE PER DAY
     Route: 048
  2. TRAMCET [Suspect]
     Indication: PAIN
     Dosage: 3 DOSES ONCE PER DAY
     Route: 048
  3. WARFARIN [Concomitant]
     Route: 048
  4. LYRICA [Concomitant]
     Indication: PAIN
     Route: 048

REACTIONS (1)
  - Myocardial infarction [Recovered/Resolved]
